FAERS Safety Report 8323254-8 (Version None)
Quarter: 2012Q2

REPORT INFORMATION
  Report Type: 
  Country: None (occurrence: None)
  Receive Date: 20120430
  Receipt Date: 20120427
  Transmission Date: 20120825
  Serious: Yes (Life-Threatening, Hospitalization)
  Sender: FDA-Public Use
  Company Number: CHPA2012DE009472

PATIENT
  Age: 16 Year
  Sex: Male
  Weight: 72 kg

DRUGS (2)
  1. ETHANOL [Suspect]
     Indication: SUICIDAL IDEATION
     Dosage: UNK, UNK
     Route: 048
  2. DEXTROMETHORPHAN HYDROBROMIDE [Suspect]
     Indication: SUICIDAL IDEATION
     Dosage: 1800 MG, ONCE/SINGLE
     Route: 048
     Dates: start: 20120327, end: 20120327

REACTIONS (5)
  - CRUSH SYNDROME [None]
  - INTENTIONAL OVERDOSE [None]
  - RHABDOMYOLYSIS [None]
  - OFF LABEL USE [None]
  - SUICIDE ATTEMPT [None]
